FAERS Safety Report 15076632 (Version 1)
Quarter: 2018Q2

REPORT INFORMATION
  Report Type: Report from Study
  Country: FR (occurrence: FR)
  Receive Date: 20180627
  Receipt Date: 20180627
  Transmission Date: 20180711
  Serious: Yes (Other)
  Sender: FDA-Public Use
  Company Number: FR-TEVA-2018-FR-912781

PATIENT
  Age: 71 Year
  Sex: Male
  Weight: 73 kg

DRUGS (9)
  1. LOVENOX [Concomitant]
     Active Substance: ENOXAPARIN SODIUM
     Indication: PROPHYLAXIS
     Dosage: 4000 IU (INTERNATIONAL UNIT) DAILY; 4000 IU, QD
     Route: 058
     Dates: start: 20170123, end: 20170630
  2. FENTANYL. [Suspect]
     Active Substance: FENTANYL
     Dosage: 12 MUG, UNK
     Route: 058
     Dates: start: 20170123
  3. VALACICLOVIR [Concomitant]
     Active Substance: VALACYCLOVIR HYDROCHLORIDE
     Indication: ANTIVIRAL PROPHYLAXIS
     Dosage: 500 MILLIGRAM DAILY; 500 MG, QD
     Route: 048
     Dates: start: 20170123
  4. LOVENOX [Suspect]
     Active Substance: ENOXAPARIN SODIUM
     Indication: THROMBOSIS PROPHYLAXIS
     Dosage: 4000 IU (INTERNATIONAL UNIT) DAILY; 4000 IU, QD
     Route: 058
     Dates: start: 20170123, end: 20170630
  5. REVLIMID [Suspect]
     Active Substance: LENALIDOMIDE
     Indication: PLASMA CELL MYELOMA
     Dosage: 25 MG, (D1 TO D21)
     Route: 048
     Dates: start: 20170123
  6. DEXAMETHASONE. [Suspect]
     Active Substance: DEXAMETHASONE
     Indication: PLASMA CELL MYELOMA
     Route: 048
     Dates: start: 20170123
  7. KYPROLIS [Suspect]
     Active Substance: CARFILZOMIB
     Indication: PLASMA CELL MYELOMA
     Dosage: 27 MG/M2, DAY 1, 2, 8, 9, 15 AND 16
     Route: 042
     Dates: start: 20170123
  8. NEOFORDEX [Concomitant]
     Active Substance: DEXAMETHASONE ACETATE
     Indication: PLASMA CELL MYELOMA
     Dosage: 40 MILLIGRAM DAILY; 40 MG, D1, D8, D15, D22 DAY 1 = DAY 29.
     Route: 048
     Dates: start: 20170123
  9. XARELTO [Concomitant]
     Active Substance: RIVAROXABAN
     Dosage: 15 MILLIGRAM DAILY; 15 MG, Q12H
     Dates: start: 20170630

REACTIONS (2)
  - Cataract [Unknown]
  - Deep vein thrombosis [Unknown]

NARRATIVE: CASE EVENT DATE: 20170630
